FAERS Safety Report 6903396-1 (Version None)
Quarter: 2010Q3

REPORT INFORMATION
  Report Type: 
  Country: None (occurrence: None)
  Receive Date: 20100803
  Receipt Date: 20080926
  Transmission Date: 20110219
  Serious: No
  Sender: FDA-Public Use
  Company Number: US-PFIZER INC-2008074715

PATIENT
  Sex: Female
  Weight: 71.8 kg

DRUGS (6)
  1. LYRICA [Suspect]
     Indication: ORAL PAIN
     Dates: start: 20080616
  2. NORCO [Concomitant]
  3. TRAMADOL HYDROCHLORIDE [Concomitant]
  4. CYMBALTA [Concomitant]
  5. WELLBUTRIN XL [Concomitant]
  6. CLIMARA [Concomitant]

REACTIONS (1)
  - DRUG INEFFECTIVE [None]
